FAERS Safety Report 16288855 (Version 2)
Quarter: 2021Q1

REPORT INFORMATION
  Report Type: Spontaneous
  Country: US (occurrence: US)
  Receive Date: 20190509
  Receipt Date: 20210218
  Transmission Date: 20210419
  Serious: Yes (Disabling, Other)
  Sender: FDA-Public Use
  Company Number: US-ASTRAZENECA-2019SE66924

PATIENT
  Age: 62 Year
  Sex: Male

DRUGS (90)
  1. PREVACID [Suspect]
     Active Substance: LANSOPRAZOLE
     Indication: GASTROOESOPHAGEAL REFLUX DISEASE
     Route: 065
     Dates: start: 1995
  2. CARVEDILOL. [Concomitant]
     Active Substance: CARVEDILOL
  3. LEVEMIR [Concomitant]
     Active Substance: INSULIN DETEMIR
  4. FOLIC ACID. [Concomitant]
     Active Substance: FOLIC ACID
  5. DILTIAZEM. [Concomitant]
     Active Substance: DILTIAZEM
  6. BUMETANIDE. [Concomitant]
     Active Substance: BUMETANIDE
  7. ARIPIPRAZOLE. [Concomitant]
     Active Substance: ARIPIPRAZOLE
  8. VITAMIN B12 [Concomitant]
     Active Substance: CYANOCOBALAMIN
  9. DEXTROSE. [Concomitant]
     Active Substance: DEXTROSE
  10. REQUIP [Concomitant]
     Active Substance: ROPINIROLE HYDROCHLORIDE
  11. PRILOSEC [Suspect]
     Active Substance: OMEPRAZOLE MAGNESIUM
     Indication: GASTROOESOPHAGEAL REFLUX DISEASE
     Dosage: GENERIC20.0MG UNKNOWN
     Route: 065
  12. PRILOSEC OTC [Suspect]
     Active Substance: OMEPRAZOLE MAGNESIUM
     Indication: GASTROOESOPHAGEAL REFLUX DISEASE
     Route: 048
     Dates: end: 2011
  13. HYDRALAZINE [Concomitant]
     Active Substance: HYDRALAZINE HYDROCHLORIDE
  14. HYDROCODONE?APAP [Concomitant]
     Active Substance: ACETAMINOPHEN\HYDROCODONE
  15. HYDROCHLOROTHIAZIDE. [Concomitant]
     Active Substance: HYDROCHLOROTHIAZIDE
  16. ATORVASTATIN [Concomitant]
     Active Substance: ATORVASTATIN
  17. ERYTHROMYCIN. [Concomitant]
     Active Substance: ERYTHROMYCIN
  18. BUTALBITAL [Concomitant]
     Active Substance: BUTALBITAL
  19. PATADAY [Concomitant]
     Active Substance: OLOPATADINE HYDROCHLORIDE
  20. BENZONATATE. [Concomitant]
     Active Substance: BENZONATATE
  21. TIZANIDINE. [Concomitant]
     Active Substance: TIZANIDINE
  22. CHANTIX [Concomitant]
     Active Substance: VARENICLINE TARTRATE
  23. SULFAMETHOXAZOLE?TMP [Concomitant]
     Active Substance: SULFAMETHOXAZOLE\TRIMETHOPRIM
  24. MEDROL [Concomitant]
     Active Substance: METHYLPREDNISOLONE
  25. KAYEXALATE [Concomitant]
     Active Substance: SODIUM POLYSTYRENE SULFONATE
  26. BENZOCAINE?MENTHOL [Concomitant]
  27. PREVACID [Suspect]
     Active Substance: LANSOPRAZOLE
     Indication: GASTROOESOPHAGEAL REFLUX DISEASE
     Route: 065
     Dates: start: 1995
  28. PROAIR HFA [Concomitant]
     Active Substance: ALBUTEROL SULFATE
  29. ONDANSETRON [Concomitant]
     Active Substance: ONDANSETRON
  30. NICOTINE. [Concomitant]
     Active Substance: NICOTINE
  31. AFLURIA NOS [Concomitant]
     Active Substance: INFLUENZA VIRUS VACCINE TRIVALENT TYPE A+B AFLURIA
  32. METOCLOPRAMIDE. [Concomitant]
     Active Substance: METOCLOPRAMIDE
  33. DICLOFENAC [Concomitant]
     Active Substance: DICLOFENAC
  34. EZETIMIBE. [Concomitant]
     Active Substance: EZETIMIBE
  35. MYLANTA [Concomitant]
     Active Substance: ALUMINUM HYDROXIDE\DIMETHICONE\MAGNESIUM HYDROXIDE
  36. CLOPIDOGREL BISULFATE. [Concomitant]
     Active Substance: CLOPIDOGREL BISULFATE
  37. DILTIAZEM HYDROCHLORIDE. [Concomitant]
     Active Substance: DILTIAZEM HYDROCHLORIDE
  38. BUPRENORPHINE. [Concomitant]
     Active Substance: BUPRENORPHINE
  39. HEPARIN [Concomitant]
     Active Substance: HEPARIN SODIUM
  40. FISH OIL [Concomitant]
     Active Substance: FISH OIL
  41. NEXIUM [Suspect]
     Active Substance: ESOMEPRAZOLE MAGNESIUM
     Indication: GASTROOESOPHAGEAL REFLUX DISEASE
     Dosage: 30.0MG UNKNOWN
     Route: 048
     Dates: start: 2004, end: 2012
  42. PROTONIX [Suspect]
     Active Substance: PANTOPRAZOLE SODIUM
     Indication: GASTROOESOPHAGEAL REFLUX DISEASE
     Route: 065
  43. AMMONIUM LACTATE. [Concomitant]
     Active Substance: AMMONIUM LACTATE
  44. BYDUREON [Concomitant]
     Active Substance: EXENATIDE
  45. TAMIFLU [Concomitant]
     Active Substance: OSELTAMIVIR PHOSPHATE
  46. DICLOFENAC SODIUM. [Concomitant]
     Active Substance: DICLOFENAC SODIUM
  47. ATORVASTATIN CALCIUM. [Concomitant]
     Active Substance: ATORVASTATIN CALCIUM
  48. TUMS [Concomitant]
     Active Substance: CALCIUM CARBONATE
  49. AMINOPHYLLINE. [Concomitant]
     Active Substance: AMINOPHYLLINE
  50. LEXISCAN [Concomitant]
     Active Substance: REGADENOSON
  51. NEXIUM [Suspect]
     Active Substance: ESOMEPRAZOLE MAGNESIUM
     Indication: GASTROOESOPHAGEAL REFLUX DISEASE
     Dosage: 30.0MG UNKNOWN
     Route: 048
     Dates: start: 2004, end: 2012
  52. AMOXICILLIN. [Concomitant]
     Active Substance: AMOXICILLIN
  53. NOVOLOG [Concomitant]
     Active Substance: INSULIN ASPART
  54. CLOTRIMAZOLE. [Concomitant]
     Active Substance: CLOTRIMAZOLE
  55. FLUTICASONE PROPIONATE. [Concomitant]
     Active Substance: FLUTICASONE PROPIONATE
  56. JANUVIA [Concomitant]
     Active Substance: SITAGLIPTIN PHOSPHATE
  57. METHADONE [Concomitant]
     Active Substance: METHADONE HYDROCHLORIDE
  58. VITAMIN C [Concomitant]
     Active Substance: ASCORBIC ACID
  59. PRILOSEC OTC [Suspect]
     Active Substance: OMEPRAZOLE MAGNESIUM
     Indication: GASTROOESOPHAGEAL REFLUX DISEASE
     Route: 048
     Dates: end: 2011
  60. AMOX TR?K CLV [Concomitant]
     Active Substance: AMOXICILLIN\CLAVULANATE POTASSIUM
  61. AZITHROMYCIN ANHYDROUS. [Concomitant]
     Active Substance: AZITHROMYCIN ANHYDROUS
  62. INVOKANA [Concomitant]
     Active Substance: CANAGLIFLOZIN
  63. PROMETHAZINE [Concomitant]
     Active Substance: PROMETHAZINE HYDROCHLORIDE
  64. PRODIGY [Concomitant]
  65. MECLIZINE [Concomitant]
     Active Substance: MECLIZINE HYDROCHLORIDE
  66. TETRACYCLINE [Concomitant]
     Active Substance: TETRACYCLINE
  67. PRILOSEC [Suspect]
     Active Substance: OMEPRAZOLE MAGNESIUM
     Indication: GASTROOESOPHAGEAL REFLUX DISEASE
     Dosage: 30.0MG UNKNOWN
     Route: 048
     Dates: start: 1998
  68. PRILOSEC [Suspect]
     Active Substance: OMEPRAZOLE MAGNESIUM
     Indication: GASTROOESOPHAGEAL REFLUX DISEASE
     Dosage: 30.0MG UNKNOWN
     Route: 048
     Dates: start: 1998
  69. PROTONIX [Suspect]
     Active Substance: PANTOPRAZOLE SODIUM
     Indication: GASTROOESOPHAGEAL REFLUX DISEASE
     Route: 065
  70. HUMALOG [Concomitant]
     Active Substance: INSULIN LISPRO
  71. AMLODIPINE BESYLATE. [Concomitant]
     Active Substance: AMLODIPINE BESYLATE
  72. LORATADINE. [Concomitant]
     Active Substance: LORATADINE
  73. IRBESARTAN. [Concomitant]
     Active Substance: IRBESARTAN
  74. TRULICITY [Concomitant]
     Active Substance: DULAGLUTIDE
  75. SERTRALINE HYDROCHLORIDE. [Concomitant]
     Active Substance: SERTRALINE HYDROCHLORIDE
  76. BREO ELLIPTA [Concomitant]
     Active Substance: FLUTICASONE FUROATE\VILANTEROL TRIFENATATE
  77. KETOCONAZOLE. [Concomitant]
     Active Substance: KETOCONAZOLE
  78. BARIUM SULFATE [Concomitant]
     Active Substance: BARIUM SULFATE
  79. PENICILLIN VK [Concomitant]
     Active Substance: PENICILLIN V POTASSIUM
  80. GLUCAGON. [Concomitant]
     Active Substance: GLUCAGON
  81. PRILOSEC [Suspect]
     Active Substance: OMEPRAZOLE MAGNESIUM
     Indication: GASTROOESOPHAGEAL REFLUX DISEASE
     Dosage: GENERIC20.0MG UNKNOWN
     Route: 065
  82. LISINOPRIL. [Concomitant]
     Active Substance: LISINOPRIL
  83. KLOR?CON [Concomitant]
     Active Substance: POTASSIUM CHLORIDE
  84. CLOPIDOGREL [Concomitant]
     Active Substance: CLOPIDOGREL BISULFATE
  85. TOBRAMYCIN. [Concomitant]
     Active Substance: TOBRAMYCIN
  86. POLYETHYLENE GLYCOL [Concomitant]
     Active Substance: POLYETHYLENE GLYCOLS
  87. ISOSORBIDE MONOHYDRATE [Concomitant]
  88. CICLOPIROX. [Concomitant]
     Active Substance: CICLOPIROX
  89. LIDOCAINE. [Concomitant]
     Active Substance: LIDOCAINE
  90. ALCOHOL. [Concomitant]
     Active Substance: ALCOHOL

REACTIONS (6)
  - Hyperparathyroidism secondary [Unknown]
  - Acute kidney injury [Not Recovered/Not Resolved]
  - End stage renal disease [Not Recovered/Not Resolved]
  - Chronic kidney disease [Not Recovered/Not Resolved]
  - Renal failure [Not Recovered/Not Resolved]
  - Nephrogenic anaemia [Unknown]

NARRATIVE: CASE EVENT DATE: 2011
